FAERS Safety Report 7302976-1 (Version None)
Quarter: 2011Q1

REPORT INFORMATION
  Report Type: 
  Country: None (occurrence: None)
  Receive Date: 20110220
  Receipt Date: 20110214
  Transmission Date: 20110831
  Serious: Yes (Other)
  Sender: FDA-Public Use
  Company Number: NO-BRISTOL-MYERS SQUIBB COMPANY-15544786

PATIENT

DRUGS (2)
  1. METHOTREXATE [Suspect]
  2. ABATACEPT [Suspect]
     Indication: ANKYLOSING SPONDYLITIS

REACTIONS (5)
  - DEMYELINATION [None]
  - HEADACHE [None]
  - LUNG INFECTION [None]
  - PALPITATIONS [None]
  - GENITAL HERPES [None]
